FAERS Safety Report 9778234 (Version 13)
Quarter: 2014Q1

REPORT INFORMATION
  Report Type: Report from Study
  Country: CA (occurrence: CA)
  Receive Date: 20131223
  Receipt Date: 20140308
  Transmission Date: 20141002
  Serious: Yes (Other)
  Sender: FDA-Public Use
  Company Number: CA-ROCHE-1308151

PATIENT
  Age: 55 Year
  Sex: Male
  Weight: 68 kg

DRUGS (8)
  1. AVASTIN [Suspect]
     Indication: COLORECTAL CANCER
     Route: 042
     Dates: start: 20130717, end: 20140220
  2. AVASTIN [Suspect]
     Route: 042
     Dates: start: 20131223
  3. NEUPOGEN [Concomitant]
     Route: 065
     Dates: start: 20130717
  4. ONDANSETRON [Concomitant]
     Indication: NAUSEA
     Route: 065
     Dates: start: 201306
  5. ZYLOPRIM [Concomitant]
  6. RAN-PANTOPRAZOLE [Concomitant]
     Indication: DYSPEPSIA
     Route: 065
     Dates: start: 201306
  7. DEXAMETHASONE [Concomitant]
     Route: 065
     Dates: start: 20130717
  8. HYDROMORPHONE [Concomitant]
     Indication: ANALGESIC THERAPY
     Dosage: POST SURGERY BEFORE AVASTIN
     Route: 065
     Dates: start: 201307

REACTIONS (31)
  - White blood cell count decreased [Unknown]
  - Dyspnoea [Recovering/Resolving]
  - Chest discomfort [Unknown]
  - Chest discomfort [Recovered/Resolved]
  - Blood alkaline phosphatase increased [Unknown]
  - Blood lactate dehydrogenase increased [Unknown]
  - Heart rate increased [Unknown]
  - Insomnia [Unknown]
  - Red blood cell count decreased [Unknown]
  - Haemoglobin decreased [Unknown]
  - Platelet count decreased [Unknown]
  - Lymphocyte count decreased [Unknown]
  - Rhinorrhoea [Unknown]
  - Dry skin [Unknown]
  - Body temperature increased [Unknown]
  - Colorectal cancer metastatic [Unknown]
  - Pain [Unknown]
  - Haematocrit decreased [Unknown]
  - Monocyte count increased [Unknown]
  - Anion gap increased [Unknown]
  - Aspartate aminotransferase increased [Unknown]
  - Mean platelet volume decreased [Unknown]
  - Musculoskeletal pain [Unknown]
  - Blood test abnormal [Unknown]
  - Red cell distribution width increased [Unknown]
  - Mean cell volume increased [Unknown]
  - Pain [Unknown]
  - Aphonia [Unknown]
  - Back pain [Not Recovered/Not Resolved]
  - Constipation [Recovered/Resolved]
  - Disease progression [Unknown]
